FAERS Safety Report 18456292 (Version 1)
Quarter: 2020Q4

REPORT INFORMATION
  Report Type: Report from Study
  Country: US (occurrence: US)
  Receive Date: 20201103
  Receipt Date: 20201103
  Transmission Date: 20210114
  Serious: No
  Sender: FDA-Public Use
  Company Number: NVSC2020US284906

PATIENT
  Age: 41 Year
  Sex: Female

DRUGS (2)
  1. GLATOPA [Suspect]
     Active Substance: GLATIRAMER ACETATE
     Dosage: BENEATH THE SKIN, USUALLY VIA INJECTION
     Route: 058
     Dates: start: 20201022
  2. GLATOPA [Suspect]
     Active Substance: GLATIRAMER ACETATE
     Indication: PRODUCT USED FOR UNKNOWN INDICATION
     Dosage: 40 MG, TIW
     Route: 050
     Dates: start: 20201020, end: 20201022

REACTIONS (11)
  - Gastrointestinal disorder [Unknown]
  - Hot flush [Unknown]
  - Headache [Unknown]
  - Malaise [Unknown]
  - Oedema [Unknown]
  - Weight increased [Unknown]
  - Heart rate decreased [Unknown]
  - Product dose omission issue [Unknown]
  - Contusion [Unknown]
  - Erythema [Unknown]
  - Blood pressure increased [Unknown]

NARRATIVE: CASE EVENT DATE: 20201020
